FAERS Safety Report 6098276-0 (Version None)
Quarter: 2009Q1

REPORT INFORMATION
  Report Type: 
  Country: None (occurrence: None)
  Receive Date: 20090227
  Receipt Date: 20090220
  Transmission Date: 20090719
  Serious: Yes (Hospitalization)
  Sender: FDA-Public Use
  Company Number: US-ABBOTT-09P-163-0558579-00

PATIENT
  Sex: Male
  Weight: 78.542 kg

DRUGS (8)
  1. ZEMPLAR [Suspect]
     Indication: HYPERPARATHYROIDISM
     Route: 048
     Dates: start: 20090108, end: 20090123
  2. DEMADEX [Concomitant]
     Indication: DRUG USE FOR UNKNOWN INDICATION
     Dosage: 1/2 OF A 20 MG TABLET
     Route: 048
  3. MULTIVITAMINS WITH IRON [Concomitant]
     Indication: DRUG USE FOR UNKNOWN INDICATION
  4. UNNAMED CHOLESTEROL MEDICATION [Concomitant]
     Indication: DRUG USE FOR UNKNOWN INDICATION
  5. ASPIRIN [Concomitant]
     Indication: DRUG USE FOR UNKNOWN INDICATION
     Route: 048
  6. ANTACID TAB [Concomitant]
     Indication: ABDOMINAL DISCOMFORT
  7. ENALAPRIL [Concomitant]
     Indication: HYPERTENSION
  8. BAUSCH + LOMB PRESERVISION WITH LUTEIN [Concomitant]
     Indication: MACULAR DEGENERATION

REACTIONS (2)
  - FATIGUE [None]
  - HEART RATE DECREASED [None]
